FAERS Safety Report 9168734 (Version 2)
Quarter: 2013Q2

REPORT INFORMATION
  Report Type: Spontaneous
  Country: US (occurrence: US)
  Receive Date: 20130318
  Receipt Date: 20130419
  Transmission Date: 20140414
  Serious: Yes (Other)
  Sender: FDA-Public Use
  Company Number: US-PFIZER INC-2013087129

PATIENT
  Age: 56 Year
  Sex: Female
  Weight: 88.44 kg

DRUGS (6)
  1. LYRICA [Suspect]
     Indication: FIBROMYALGIA
     Dosage: 50 MG, UNK
     Route: 048
     Dates: start: 201211
  2. LYRICA [Suspect]
     Dosage: 75 MG, UNK
     Route: 048
  3. LYRICA [Suspect]
     Dosage: 100 MG, 2X/DAY
     Route: 048
  4. LYRICA [Suspect]
     Dosage: 50 MG, 2X/DAY
     Route: 048
     Dates: end: 20130313
  5. CELEXA [Concomitant]
     Indication: DEPRESSION
     Dosage: UNK
  6. CLONAZEPAM [Concomitant]
     Indication: STRESS
     Dosage: UNK

REACTIONS (9)
  - Haemorrhage [Unknown]
  - Vision blurred [Unknown]
  - Blister [Recovering/Resolving]
  - Scab [Recovering/Resolving]
  - Pain [Unknown]
  - Burning sensation [Unknown]
  - Skin disorder [Not Recovered/Not Resolved]
  - Lethargy [Unknown]
  - Malaise [Unknown]
